FAERS Safety Report 23408859 (Version 2)
Quarter: 2024Q1

REPORT INFORMATION
  Report Type: Report from Study
  Country: BR (occurrence: BR)
  Receive Date: 20240117
  Receipt Date: 20240331
  Transmission Date: 20240409
  Serious: Yes (Other)
  Sender: FDA-Public Use
  Company Number: BR-002147023-NVSC2023BR037872

PATIENT
  Age: 69 Year
  Sex: Female

DRUGS (3)
  1. KISQALI [Suspect]
     Active Substance: RIBOCICLIB
     Indication: Breast cancer
     Dosage: UNK, QD
     Route: 065
     Dates: start: 20230210
  2. KISQALI [Suspect]
     Active Substance: RIBOCICLIB
     Dosage: UNK (3RD CYCLE)
     Route: 065
     Dates: start: 20230407
  3. ANASTROZOLE [Suspect]
     Active Substance: ANASTROZOLE
     Indication: Product used for unknown indication
     Dosage: UNK
     Route: 065

REACTIONS (27)
  - Glaucoma [Unknown]
  - Flatulence [Unknown]
  - Malaise [Unknown]
  - Insomnia [Unknown]
  - Abdominal distension [Unknown]
  - Depressed mood [Unknown]
  - Emotional distress [Not Recovered/Not Resolved]
  - Movement disorder [Unknown]
  - Hypersensitivity [Not Recovered/Not Resolved]
  - Injury [Not Recovered/Not Resolved]
  - Fall [Unknown]
  - Head injury [Unknown]
  - Joint injury [Unknown]
  - Memory impairment [Unknown]
  - Constipation [Unknown]
  - Abdominal pain [Recovered/Resolved]
  - Abdominal pain [Unknown]
  - Vomiting [Unknown]
  - Nausea [Unknown]
  - Alopecia [Unknown]
  - Asthenia [Unknown]
  - Pruritus [Recovering/Resolving]
  - Fatigue [Unknown]
  - Confusional state [Unknown]
  - Visual impairment [Unknown]
  - Mental disorder [Unknown]
  - Gait disturbance [Not Recovered/Not Resolved]

NARRATIVE: CASE EVENT DATE: 20230201
